FAERS Safety Report 18867267 (Version 6)
Quarter: 2024Q2

REPORT INFORMATION
  Report Type: Spontaneous
  Country: US (occurrence: US)
  Receive Date: 20210209
  Receipt Date: 20240520
  Transmission Date: 20240715
  Serious: No
  Sender: FDA-Public Use
  Company Number: US-PFIZER INC-2021099357

PATIENT
  Age: 61 Year
  Sex: Female

DRUGS (4)
  1. IBRANCE [Suspect]
     Active Substance: PALBOCICLIB
     Dosage: 21 DAYS ON, 14 DAYS OFF
     Dates: start: 20201117
  2. IBRANCE [Suspect]
     Active Substance: PALBOCICLIB
     Dosage: TOOK 1 TABLET DAILY. TAKE WITH OR WITHOUT FOOD FOR 21 DAYS THEN OFF 14 DAYS (35 DAY CYCLE)
     Route: 048
     Dates: start: 20211104
  3. IBRANCE [Suspect]
     Active Substance: PALBOCICLIB
     Dosage: TOOK 1 TABLET DAILY. TAKE WITH OR WITHOUT FOOD FOR 21 DAYS THEN OFF 14 DAYS (35 DAY CYCLE)
     Route: 048
     Dates: start: 20211209
  4. IBRANCE [Suspect]
     Active Substance: PALBOCICLIB
     Dosage: TAKE 1 TABLET DAILY, WITH OR WITHOUT FOOD FOR 14 DAYS, THEN OFF 14 DAYS (28 DAY CYCLE)
     Route: 048

REACTIONS (3)
  - Alopecia [Unknown]
  - White blood cell count decreased [Unknown]
  - Off label use [Unknown]
